FAERS Safety Report 7738827-0 (Version None)
Quarter: 2011Q3

REPORT INFORMATION
  Report Type: 
  Country: None (occurrence: None)
  Receive Date: 20110909
  Receipt Date: 20110830
  Transmission Date: 20111222
  Serious: Yes (Hospitalization)
  Sender: FDA-Public Use
  Company Number: US-BIOGENIDEC-2011BI002898

PATIENT
  Age: 51 Year
  Sex: Female
  Weight: 88 kg

DRUGS (4)
  1. DECADRON [Concomitant]
     Indication: PREMEDICATION
     Dates: start: 20110825, end: 20110825
  2. TYSABRI [Suspect]
     Indication: MULTIPLE SCLEROSIS
     Route: 042
     Dates: start: 20070118
  3. TYLENOL-500 [Concomitant]
     Indication: PREMEDICATION
     Route: 048
     Dates: start: 20110825, end: 20110825
  4. BENADRYL [Concomitant]
     Indication: PREMEDICATION
     Dates: start: 20110825, end: 20110825

REACTIONS (4)
  - DRUG HYPERSENSITIVITY [None]
  - CELLULITIS STAPHYLOCOCCAL [None]
  - SOMNOLENCE [None]
  - ABSCESS LIMB [None]
